FAERS Safety Report 8356679-5 (Version None)
Quarter: 2012Q2

REPORT INFORMATION
  Report Type: 
  Country: None (occurrence: None)
  Receive Date: 20120514
  Receipt Date: 20120508
  Transmission Date: 20120825
  Serious: Yes (Other)
  Sender: FDA-Public Use
  Company Number: US-PFIZER INC-2012001030

PATIENT
  Sex: Female
  Weight: 117 kg

DRUGS (3)
  1. DILANTIN [Suspect]
     Indication: EPILEPSY
     Dosage: 100 MG, UNK
     Dates: start: 19660101
  2. ACETAMINOPHEN [Concomitant]
     Dosage: UNK
  3. IBUPROFEN [Concomitant]
     Dosage: UNK

REACTIONS (5)
  - BACK INJURY [None]
  - JOINT DISLOCATION [None]
  - GINGIVAL DISORDER [None]
  - LIGAMENT SPRAIN [None]
  - JOINT INJURY [None]
